FAERS Safety Report 26154821 (Version 1)
Quarter: 2025Q4

REPORT INFORMATION
  Report Type: Spontaneous
  Country: SA (occurrence: SA)
  Receive Date: 20251215
  Receipt Date: 20251215
  Transmission Date: 20260118
  Serious: Yes (Hospitalization)
  Sender: MACLEODS
  Company Number: SA-MACLEODS PHARMA-MAC2025057020

PATIENT

DRUGS (1)
  1. PREGABALIN [Suspect]
     Active Substance: PREGABALIN
     Indication: Product used for unknown indication
     Dosage: FOR 15 YEARS
     Route: 065

REACTIONS (7)
  - Restlessness [Recovered/Resolved]
  - Muscle discomfort [Recovered/Resolved]
  - Withdrawal syndrome [Recovered/Resolved]
  - Agitation [Recovered/Resolved]
  - Rhabdomyolysis [Recovered/Resolved]
  - Insomnia [Recovered/Resolved]
  - Drug abuse [Unknown]
